FAERS Safety Report 4819274-8 (Version None)
Quarter: 2005Q4

REPORT INFORMATION
  Report Type: 
  Country: None (occurrence: None)
  Receive Date: 20051103
  Receipt Date: 20050919
  Transmission Date: 20060501
  Serious: Yes (Hospitalization)
  Sender: FDA-Public Use
  Company Number: FR-ROCHE-417988

PATIENT
  Age: 58 Year
  Sex: Male
  Weight: 62 kg

DRUGS (6)
  1. CAPECITABINE [Suspect]
     Indication: COLORECTAL CANCER
     Dosage: GIVEN FROM DAYS ONE TO SEVEN EVERY TWO WEEKS.
     Route: 048
     Dates: start: 20050718
  2. CAPECITABINE [Suspect]
     Route: 048
     Dates: start: 20051012
  3. BEVACIZUMAB [Suspect]
     Indication: COLORECTAL CANCER
     Route: 042
     Dates: start: 20050718
  4. BEVACIZUMAB [Suspect]
     Route: 042
     Dates: start: 20051013
  5. OXALIPLATIN [Suspect]
     Indication: COLORECTAL CANCER
     Route: 042
     Dates: start: 20050718
  6. OXALIPLATIN [Suspect]
     Route: 042
     Dates: start: 20051015

REACTIONS (2)
  - ACUTE ABDOMEN [None]
  - PANCREATITIS ACUTE [None]
